FAERS Safety Report 13183117 (Version 1)
Quarter: 2017Q1

REPORT INFORMATION
  Report Type: Spontaneous
  Country: FR (occurrence: FR)
  Receive Date: 20170203
  Receipt Date: 20170203
  Transmission Date: 20170428
  Serious: Yes (Life-Threatening, Hospitalization, Other)
  Sender: FDA-Public Use
  Company Number: FR-PFIZER INC-2017041589

PATIENT
  Age: 84 Year
  Sex: Male

DRUGS (13)
  1. LASILIX /00032601/ [Concomitant]
     Active Substance: FUROSEMIDE
     Dosage: 2 DF, DAILY
  2. PREVISCAN /00789001/ [Suspect]
     Active Substance: FLUINDIONE
     Indication: MYOCARDIAL ISCHAEMIA
     Dosage: ACCORDING TO INR
     Route: 048
     Dates: start: 20161003, end: 20170102
  3. HYPERIUM [Concomitant]
     Active Substance: RILMENIDINE PHOSPHATE
     Dosage: 1 MG, DAILY
  4. TAHOR [Suspect]
     Active Substance: ATORVASTATIN CALCIUM
     Indication: HYPERCHOLESTEROLAEMIA
     Dosage: 20 MG, DAILY
     Route: 048
     Dates: start: 20161003, end: 20170102
  5. LERCAN [Concomitant]
     Active Substance: LERCANIDIPINE
     Dosage: 20 MG, DAILY
  6. RASILEZ [Concomitant]
     Active Substance: ALISKIREN
     Dosage: 300 MG, DAILY
  7. AMIODARONE [Concomitant]
     Active Substance: AMIODARONE
     Dosage: 1 DF, DAILY
  8. TEMESTA /00273201/ [Concomitant]
     Active Substance: LORAZEPAM
     Dosage: 2.5 MG, DAILY
  9. TAHOR [Suspect]
     Active Substance: ATORVASTATIN CALCIUM
     Dosage: AROUND 10 TABLETS
     Route: 048
     Dates: start: 20170103, end: 20170103
  10. TEMERIT [Concomitant]
     Active Substance: NEBIVOLOL
     Dosage: 0.5 DF, DAILY
  11. TAHOR [Suspect]
     Active Substance: ATORVASTATIN CALCIUM
     Dosage: 20 MG, DAILY
     Route: 048
     Dates: start: 20170104, end: 20170105
  12. PREVISCAN /00789001/ [Suspect]
     Active Substance: FLUINDIONE
     Dosage: 1 BOX
     Route: 048
     Dates: start: 20170103, end: 20170103
  13. KAYEXALATE [Concomitant]
     Active Substance: SODIUM POLYSTYRENE SULFONATE
     Dosage: 1 MEASURING SPOON, DAILY

REACTIONS (6)
  - International normalised ratio increased [Recovered/Resolved]
  - Overdose [Unknown]
  - Blood creatine phosphokinase increased [Recovered/Resolved]
  - Hyperglycaemia [Unknown]
  - Pneumonia [Unknown]
  - Toxicity to various agents [Recovering/Resolving]

NARRATIVE: CASE EVENT DATE: 201701
